FAERS Safety Report 17765793 (Version 1)
Quarter: 2020Q2

REPORT INFORMATION
  Report Type: Spontaneous
  Country: US (occurrence: US)
  Receive Date: 20200509
  Receipt Date: 20200509
  Transmission Date: 20200714
  Serious: No
  Sender: FDA-Public Use
  Company Number: None

PATIENT
  Sex: Male
  Weight: 82.5 kg

DRUGS (3)
  1. LANALIDOMIDE (CC-5013) [Suspect]
     Active Substance: LENALIDOMIDE
  2. VELCADE [Suspect]
     Active Substance: BORTEZOMIB
  3. DEXAMETHASONE. [Suspect]
     Active Substance: DEXAMETHASONE
     Dates: end: 20161227

REACTIONS (2)
  - Lymphocyte count decreased [None]
  - Blood sodium decreased [None]

NARRATIVE: CASE EVENT DATE: 20170109
